FAERS Safety Report 15288663 (Version 1)
Quarter: 2018Q3

REPORT INFORMATION
  Report Type: Spontaneous
  Country: US (occurrence: US)
  Receive Date: 20180802
  Receipt Date: 20180802
  Transmission Date: 20181010
  Serious: Yes (Disabling)
  Sender: FDA-Public Use
  Company Number: None

PATIENT
  Age: 72 Year
  Sex: Female
  Weight: 61.69 kg

DRUGS (8)
  1. SYNTHROID [Concomitant]
     Active Substance: LEVOTHYROXINE SODIUM
  2. MAGNESIUM [Concomitant]
     Active Substance: MAGNESIUM
  3. MULTIPLE VIT [Concomitant]
  4. PROLIA [Suspect]
     Active Substance: DENOSUMAB
     Indication: OSTEOPOROSIS
     Dates: start: 20170301, end: 20170301
  5. CALCIUM [Concomitant]
     Active Substance: CALCIUM
  6. ATIVAN [Concomitant]
     Active Substance: LORAZEPAM
  7. TRAMADOL. [Concomitant]
     Active Substance: TRAMADOL
  8. VITAMIN C [Concomitant]
     Active Substance: ASCORBIC ACID

REACTIONS (3)
  - Back pain [None]
  - Muscle spasms [None]
  - Arthralgia [None]

NARRATIVE: CASE EVENT DATE: 20180304
